FAERS Safety Report 6729469-4 (Version None)
Quarter: 2010Q2

REPORT INFORMATION
  Report Type: 
  Country: None (occurrence: None)
  Receive Date: 20100518
  Receipt Date: 20100506
  Transmission Date: 20101027
  Serious: No
  Sender: FDA-Public Use
  Company Number: US-BIOGENIDEC-2010BI015542

PATIENT
  Age: 48 Year
  Sex: Female

DRUGS (1)
  1. TYSABRI [Suspect]
     Indication: MULTIPLE SCLEROSIS
     Route: 042
     Dates: start: 20081201

REACTIONS (6)
  - ASTHENIA [None]
  - BASEDOW'S DISEASE [None]
  - DEPRESSION [None]
  - GOITRE [None]
  - HEMIPARESIS [None]
  - MEMORY IMPAIRMENT [None]
